FAERS Safety Report 16234532 (Version 1)
Quarter: 2019Q2

REPORT INFORMATION
  Report Type: Spontaneous
  Country: IT (occurrence: IT)
  Receive Date: 20190424
  Receipt Date: 20190424
  Transmission Date: 20190711
  Serious: Yes (Other)
  Sender: FDA-Public Use
  Company Number: IT-SA-2019SA106517

PATIENT
  Age: 78 Year
  Sex: Female

DRUGS (8)
  1. ATENOLOL. [Concomitant]
     Active Substance: ATENOLOL
  2. DIBASE [Concomitant]
     Active Substance: CHOLECALCIFEROL
  3. TORVAST [Concomitant]
     Active Substance: ATORVASTATIN
  4. LANSOX [Concomitant]
     Active Substance: LANSOPRAZOLE
  5. LASIX [Concomitant]
     Active Substance: FUROSEMIDE
  6. CARDIRENE [Concomitant]
     Active Substance: ASPIRIN DL-LYSINE
  7. ARAVA [Suspect]
     Active Substance: LEFLUNOMIDE
     Indication: STILL^S DISEASE
     Dosage: 20 MG, QD
     Route: 048
     Dates: start: 20181201, end: 20190306
  8. FOLINA [CALCIUM FOLINATE] [Concomitant]

REACTIONS (1)
  - Endometrial cancer [Not Recovered/Not Resolved]

NARRATIVE: CASE EVENT DATE: 20190306
